FAERS Safety Report 4507522-3 (Version None)
Quarter: 2004Q4

REPORT INFORMATION
  Report Type: 
  Country: None (occurrence: None)
  Receive Date: 20041018
  Receipt Date: 20040811
  Transmission Date: 20050328
  Serious: No
  Sender: FDA-Public Use
  Company Number: 208373

PATIENT
  Age: 53 Year
  Sex: Male
  Weight: 83.9 kg

DRUGS (7)
  1. XOLAIR [Suspect]
     Indication: ASTHMA
     Dosage: 450 MG, Q2W, SUBCUTANEOUS
     Route: 058
     Dates: start: 20040601
  2. NORVASC [Concomitant]
  3. ALLEGRA [Concomitant]
  4. FLONASE [Concomitant]
  5. SEREVENT [Concomitant]
  6. FORADIL [Concomitant]
  7. ALBUTEROL (ALBUTEROL, ALBUTEROL SULFATE) [Concomitant]

REACTIONS (1)
  - BLOOD PRESSURE INCREASED [None]
